FAERS Safety Report 22258928 (Version 2)
Quarter: 2023Q2

REPORT INFORMATION
  Report Type: Spontaneous
  Country: CA (occurrence: None)
  Receive Date: 20230427
  Receipt Date: 20230515
  Transmission Date: 20230722
  Serious: Yes (Other)
  Sender: FDA-Public Use
  Company Number: CA-PFIZER INC-202300169995

PATIENT
  Age: 7 Year
  Sex: Male
  Weight: 24 kg

DRUGS (4)
  1. METHOTREXATE [Suspect]
     Active Substance: METHOTREXATE
     Indication: Product used for unknown indication
     Route: 048
  2. NAPROXEN [Suspect]
     Active Substance: NAPROXEN
     Indication: Product used for unknown indication
     Route: 065
  3. PREDNISONE [Suspect]
     Active Substance: PREDNISONE
     Indication: Product used for unknown indication
     Route: 065
  4. ONDANSETRON [Concomitant]
     Active Substance: ONDANSETRON
     Dosage: PRE AND POST METHOTREXATE
     Route: 048

REACTIONS (3)
  - Neck injury [Unknown]
  - Drug ineffective [Unknown]
  - Joint effusion [Unknown]

NARRATIVE: CASE EVENT DATE: 20230101
